FAERS Safety Report 7941784-5 (Version None)
Quarter: 2011Q4

REPORT INFORMATION
  Report Type: 
  Country: None (occurrence: None)
  Receive Date: 20111128
  Receipt Date: 20111117
  Transmission Date: 20120403
  Serious: Yes (Other)
  Sender: FDA-Public Use
  Company Number: US-JNJFOC-20111012841

PATIENT
  Age: 45 Year
  Sex: Female
  Weight: 56.7 kg

DRUGS (5)
  1. ATENOLOL [Concomitant]
     Indication: HYPERTENSION
     Route: 065
     Dates: start: 20111026
  2. RETIN-A MICRO [Suspect]
     Indication: ACNE
     Dosage: NDC# 011448848A
     Route: 061
     Dates: start: 20110906, end: 20111008
  3. BIOESSENCE DIETARY SUPPLEMENT [Concomitant]
     Indication: NUTRITIONAL SUPPORT
     Route: 065
  4. RETIN-A [Suspect]
     Indication: ACNE
     Dosage: NDC# 011448848A
     Route: 061
     Dates: start: 20100101, end: 20110801
  5. ASPIRIN [Concomitant]
     Indication: PROPHYLAXIS
     Route: 065

REACTIONS (4)
  - PROTEIN URINE PRESENT [None]
  - DIZZINESS [None]
  - HEADACHE [None]
  - ALBUMIN URINE PRESENT [None]
